FAERS Safety Report 5981593-X (Version None)
Quarter: 2008Q4

REPORT INFORMATION
  Report Type: 
  Country: None (occurrence: None)
  Receive Date: 20081205
  Receipt Date: 20081120
  Transmission Date: 20090506
  Serious: Yes (Hospitalization)
  Sender: FDA-Public Use
  Company Number: FR-GENENTECH-272541

PATIENT
  Sex: Female

DRUGS (2)
  1. MABTHERA [Suspect]
     Indication: ACUTE LYMPHOCYTIC LEUKAEMIA
     Dosage: 1 UNK, 1/WEEK
     Route: 042
     Dates: start: 20080624, end: 20080708
  2. TIENAM [Suspect]
     Indication: STAPHYLOCOCCAL INFECTION
     Dosage: 1350 MG, Q8H
     Route: 042
     Dates: start: 20080715, end: 20080728

REACTIONS (1)
  - ENCEPHALITIS [None]
